FAERS Safety Report 19479417 (Version 7)
Quarter: 2021Q3

REPORT INFORMATION
  Report Type: Report from Study
  Country: CA (occurrence: CA)
  Receive Date: 20210630
  Receipt Date: 20210915
  Transmission Date: 20211014
  Serious: Yes (Other)
  Sender: FDA-Public Use
  Company Number: CA-TAKEDA-CA202021827

PATIENT
  Age: 27 Year
  Sex: Female
  Weight: 57 kg

DRUGS (5)
  1. VELAGLUCERASE ALFA [Suspect]
     Active Substance: VELAGLUCERASE ALFA
     Dosage: 1600 INTERNATIONAL UNIT (4 VIALS), Q2WEEKS
     Route: 065
     Dates: start: 20130101
  2. VELAGLUCERASE ALFA [Suspect]
     Active Substance: VELAGLUCERASE ALFA
     Indication: GAUCHER^S DISEASE
     Dosage: 1600 INTERNATIONAL UNIT (4 VIALS) ALTERNATE WITH 2000 UNITS (5 VIALS), 1X/2WKS
     Route: 065
     Dates: start: 20130101
  3. VELAGLUCERASE ALFA [Suspect]
     Active Substance: VELAGLUCERASE ALFA
     Dosage: 1600 INTERNATIONAL UNIT (4 VIALS), Q2WEEKS
     Route: 065
     Dates: start: 20130101
  4. VELAGLUCERASE ALFA [Suspect]
     Active Substance: VELAGLUCERASE ALFA
     Dosage: 60 INTERNATIONAL UNIT, Q2WEEKS
     Route: 065
     Dates: start: 20130101
  5. VELAGLUCERASE ALFA [Suspect]
     Active Substance: VELAGLUCERASE ALFA
     Dosage: 2000 INTERNATIONAL UNIT (5 VIALS), Q2WEEKS
     Route: 065
     Dates: start: 20130101

REACTIONS (22)
  - Condition aggravated [Not Recovered/Not Resolved]
  - Anorectal swelling [Not Recovered/Not Resolved]
  - Sleep disorder [Not Recovered/Not Resolved]
  - Nausea [Not Recovered/Not Resolved]
  - Inappropriate schedule of product administration [Unknown]
  - Swelling [Not Recovered/Not Resolved]
  - Abdominal discomfort [Unknown]
  - Infusion related reaction [Recovered/Resolved]
  - Constipation [Not Recovered/Not Resolved]
  - Bone pain [Not Recovered/Not Resolved]
  - Blood pressure decreased [Recovered/Resolved]
  - Product dose omission issue [Unknown]
  - Weight fluctuation [Not Recovered/Not Resolved]
  - Bone marrow disorder [Not Recovered/Not Resolved]
  - Fatigue [Not Recovered/Not Resolved]
  - Bile duct stone [Recovered/Resolved]
  - Blood iron decreased [Not Recovered/Not Resolved]
  - Affective disorder [Not Recovered/Not Resolved]
  - Immune system disorder [Unknown]
  - Abdominal pain [Not Recovered/Not Resolved]
  - Abdominal distension [Not Recovered/Not Resolved]
  - Anxiety [Not Recovered/Not Resolved]

NARRATIVE: CASE EVENT DATE: 20200703
